FAERS Safety Report 6829630-4 (Version None)
Quarter: 2010Q3

REPORT INFORMATION
  Report Type: 
  Country: None (occurrence: None)
  Receive Date: 20100709
  Receipt Date: 20070418
  Transmission Date: 20110219
  Serious: No
  Sender: FDA-Public Use
  Company Number: US-PFIZER INC-2007013849

PATIENT
  Sex: Female
  Weight: 69.85 kg

DRUGS (7)
  1. CHANTIX [Suspect]
     Indication: SMOKING CESSATION THERAPY
     Route: 048
     Dates: start: 20070210
  2. TEGRETOL - SLOW RELEASE [Concomitant]
     Indication: EPILEPSY
     Route: 048
  3. MICARDIS HCT [Concomitant]
     Route: 048
  4. COREG [Concomitant]
     Route: 048
  5. LIPITOR [Concomitant]
     Route: 048
  6. IPRATROPIUM BROMIDE [Concomitant]
     Route: 045
  7. MULTI-VITAMINS [Concomitant]
     Route: 048

REACTIONS (4)
  - CHILLS [None]
  - EAR PAIN [None]
  - HEADACHE [None]
  - TREMOR [None]
